FAERS Safety Report 13191447 (Version 1)
Quarter: 2017Q1

REPORT INFORMATION
  Report Type: Spontaneous
  Country: US (occurrence: US)
  Receive Date: 20170207
  Receipt Date: 20170207
  Transmission Date: 20170428
  Serious: Yes (Other)
  Sender: FDA-Public Use
  Company Number: US-ACCORD-048004

PATIENT
  Age: 28 Year
  Sex: Female

DRUGS (11)
  1. HEPARIN [Suspect]
     Active Substance: HEPARIN SODIUM
     Indication: ANTICOAGULANT THERAPY
     Dosage: HEPARIN DRIP
  2. METHYLPREDNISOLONE. [Concomitant]
     Active Substance: METHYLPREDNISOLONE
     Indication: TRANSPLANT REJECTION
     Dosage: ON DAYS 1, 4, 8, AND 11
  3. VANCOMYCIN [Concomitant]
     Active Substance: VANCOMYCIN
     Route: 042
  4. WARFARIN [Suspect]
     Active Substance: WARFARIN
     Indication: ANTICOAGULANT THERAPY
  5. ALEMTUZUMAB [Concomitant]
     Active Substance: ALEMTUZUMAB
     Dosage: 1 DOSE
  6. MYCOPHENOLIC ACID. [Suspect]
     Active Substance: MYCOPHENOLIC ACID
     Indication: RENAL TRANSPLANT
     Dosage: DOSE WAS REDUCED TO 500 MG TWICE DAILY
  7. ARGATROBAN. [Suspect]
     Active Substance: ARGATROBAN
     Indication: ANTICOAGULANT THERAPY
  8. TACROLIMUS. [Suspect]
     Active Substance: TACROLIMUS
     Indication: RENAL TRANSPLANT
  9. RITUXIMAB [Concomitant]
     Active Substance: RITUXIMAB
     Indication: TRANSPLANT REJECTION
     Dosage: ON DAY 1
  10. BORTEZOMIB [Concomitant]
     Active Substance: BORTEZOMIB
     Indication: TRANSPLANT REJECTION
     Dosage: ON DAYS 1, 4, 8, AND 11.
  11. PREDNISONE. [Concomitant]
     Active Substance: PREDNISONE

REACTIONS (2)
  - Leukopenia [Unknown]
  - Haemolytic uraemic syndrome [Unknown]
